FAERS Safety Report 19443912 (Version 1)
Quarter: 2021Q2

REPORT INFORMATION
  Report Type: Spontaneous
  Country: JP (occurrence: JP)
  Receive Date: 20210621
  Receipt Date: 20210621
  Transmission Date: 20210717
  Serious: Yes (Other)
  Sender: FDA-Public Use
  Company Number: JP-EXELIXIS-CABO-21041611

PATIENT
  Age: 70 Year
  Sex: Female

DRUGS (2)
  1. CABOMETYX [Suspect]
     Active Substance: CABOZANTINIB S-MALATE
     Indication: RENAL CELL CARCINOMA RECURRENT
     Dosage: 60 MG, QD
     Route: 048
     Dates: start: 202102, end: 202103
  2. CABOMETYX [Suspect]
     Active Substance: CABOZANTINIB S-MALATE
     Dosage: 40 MG, QD
     Route: 048
     Dates: start: 202105, end: 202106

REACTIONS (2)
  - Haematotoxicity [Recovered/Resolved]
  - Protein urine present [Recovered/Resolved]

NARRATIVE: CASE EVENT DATE: 202103
